FAERS Safety Report 4705315-5 (Version None)
Quarter: 2005Q2

REPORT INFORMATION
  Report Type: 
  Country: None (occurrence: None)
  Receive Date: 20050629
  Receipt Date: 20050620
  Transmission Date: 20051028
  Serious: Yes (Hospitalization)
  Sender: FDA-Public Use
  Company Number: 002#4#2005-00194

PATIENT
  Age: 78 Year
  Sex: Female
  Weight: 48.0813 kg

DRUGS (4)
  1. GLYCOLAX [Suspect]
     Indication: CONSTIPATION
     Dosage: 17 G, 1 IN 1 D, ORAL
     Route: 048
     Dates: start: 20041001, end: 20041201
  2. VALSARTAN [Concomitant]
  3. NIFEDIPINE [Concomitant]
  4. LEVOTHYROXINE [Concomitant]

REACTIONS (8)
  - ARTHRITIS [None]
  - CROHN'S DISEASE [None]
  - DIARRHOEA [None]
  - INFECTION PARASITIC [None]
  - PAIN [None]
  - RASH [None]
  - URTICARIA [None]
  - WEIGHT DECREASED [None]
